FAERS Safety Report 19659121 (Version 2)
Quarter: 2021Q3

REPORT INFORMATION
  Report Type: Spontaneous
  Country: US (occurrence: US)
  Receive Date: 20210805
  Receipt Date: 20210818
  Transmission Date: 20211014
  Serious: No
  Sender: FDA-Public Use
  Company Number: US-JNJFOC-20210757967

PATIENT
  Age: 27 Year

DRUGS (4)
  1. IBUPROFEN. [Suspect]
     Active Substance: IBUPROFEN
     Indication: HEADACHE
  2. IBUPROFEN. [Suspect]
     Active Substance: IBUPROFEN
     Indication: PAIN
  3. IBUPROFEN. [Suspect]
     Active Substance: IBUPROFEN
     Indication: HYPERHIDROSIS
     Dosage: TOOK LAST NIGHT 25/JUL.2021 AND TOOK AGAIN THIS MORNING 26/JUL/2021
     Route: 065
     Dates: start: 20210725
  4. COVID?19 VACCINE [Concomitant]
     Indication: IMMUNISATION
     Route: 065
     Dates: start: 20210725

REACTIONS (2)
  - Product use in unapproved indication [Unknown]
  - Drug ineffective [Unknown]

NARRATIVE: CASE EVENT DATE: 20210725
